FAERS Safety Report 15291323 (Version 2)
Quarter: 2018Q3

REPORT INFORMATION
  Report Type: Spontaneous
  Country: US (occurrence: US)
  Receive Date: 20180817
  Receipt Date: 20180927
  Transmission Date: 20181010
  Serious: No
  Sender: FDA-Public Use
  Company Number: US-009507513-1807USA010321

PATIENT
  Age: 33 Year
  Sex: Female
  Weight: 121.9 kg

DRUGS (4)
  1. LISINOPRIL. [Concomitant]
     Active Substance: LISINOPRIL
     Indication: HYPERTENSION
     Dosage: 25 MG, UNK
     Route: 048
     Dates: start: 20170717
  2. MELOXICAM. [Concomitant]
     Active Substance: MELOXICAM
     Indication: ARTHRALGIA
     Dosage: 7.5 MG, UNK
     Route: 048
     Dates: start: 20170616
  3. NEXPLANON [Suspect]
     Active Substance: ETONOGESTREL
     Indication: CONTRACEPTION
     Dosage: 68 MG IMPLANT, EVERY 3 YEAR
     Route: 059
     Dates: start: 20180719, end: 20180719
  4. AMITRIPTYLINE HYDROCHLORIDE. [Concomitant]
     Active Substance: AMITRIPTYLINE HYDROCHLORIDE
     Indication: MIGRAINE
     Dosage: 10 MG, UNK
     Route: 048
     Dates: start: 20170112

REACTIONS (4)
  - Needle issue [Recovering/Resolving]
  - No adverse event [Unknown]
  - Device deployment issue [Recovering/Resolving]
  - Complication of device insertion [Recovering/Resolving]

NARRATIVE: CASE EVENT DATE: 20180719
